FAERS Safety Report 9752747 (Version 1)
Quarter: 2013Q4

REPORT INFORMATION
  Report Type: Spontaneous
  Country: US (occurrence: US)
  Receive Date: 20131213
  Receipt Date: 20131213
  Transmission Date: 20140711
  Serious: No
  Sender: FDA-Public Use
  Company Number: US-BAYER-2013-152348

PATIENT
  Age: 87 Year
  Sex: Female
  Weight: 50.79 kg

DRUGS (3)
  1. ALEVE CAPLET [Suspect]
     Dosage: 2 DF, BID
     Route: 048
     Dates: start: 201310
  2. FISH OIL [Concomitant]
  3. BAYER ASPIRIN REGIMEN ADULT LOW STRENGTH [Concomitant]

REACTIONS (3)
  - Throat irritation [Recovered/Resolved]
  - Incorrect drug administration duration [None]
  - Extra dose administered [None]
